FAERS Safety Report 7339359-4 (Version None)
Quarter: 2011Q1

REPORT INFORMATION
  Report Type: 
  Country: None (occurrence: None)
  Receive Date: 20110308
  Receipt Date: 20110302
  Transmission Date: 20110831
  Serious: Yes (Congenital Anomaly)
  Sender: FDA-Public Use
  Company Number: FR-GILEAD-2010-0031727

PATIENT
  Sex: Female

DRUGS (5)
  1. TRUVADA [Suspect]
     Indication: HIV INFECTION
     Route: 064
  2. PREZISTA [Suspect]
     Indication: HIV INFECTION
     Route: 064
  3. RIVOTRIL [Suspect]
     Indication: EPILEPSY
     Route: 064
     Dates: start: 20100103, end: 20100103
  4. NORVIR [Suspect]
     Indication: HIV INFECTION
  5. DEPAKENE [Suspect]
     Indication: EPILEPSY
     Route: 064

REACTIONS (2)
  - INTRAVENTRICULAR HAEMORRHAGE [None]
  - HEART DISEASE CONGENITAL [None]
